FAERS Safety Report 10989399 (Version 1)
Quarter: 2015Q1

REPORT INFORMATION
  Report Type: Spontaneous
  Country: US (occurrence: None)
  Receive Date: 20150326
  Receipt Date: 20150326
  Transmission Date: 20150721
  Serious: No
  Sender: FDA-Public Use
  Company Number: 1000072698

PATIENT
  Age: 76 Year
  Sex: Female

DRUGS (2)
  1. COLACE (DOCUSATE SODIUM) (DOCUSATE SODIUM) [Concomitant]
  2. LINZESS [Suspect]
     Active Substance: LINACLOTIDE
     Indication: CONSTIPATION
     Dates: start: 201403

REACTIONS (1)
  - Drug ineffective [None]

NARRATIVE: CASE EVENT DATE: 201410
